FAERS Safety Report 8763367 (Version 2)
Quarter: 2012Q4

REPORT INFORMATION
  Report Type: 
  Country: US (occurrence: US)
  Receive Date: 20120831
  Receipt Date: 20120926
  Transmission Date: 20130627
  Serious: No
  Sender: FDA-Public Use
  Company Number: US-PFIZER INC-2012213828

PATIENT
  Age: 69 Year
  Sex: Male
  Weight: 91.16 kg

DRUGS (7)
  1. LYRICA [Suspect]
     Indication: PAIN
     Dosage: 150 mg, 2x/day
     Route: 048
  2. ASPIRIN [Concomitant]
     Indication: CARDIAC DISORDER
     Dosage: 81 mg, daily
     Dates: start: 200708
  3. QUINAPRIL HYDROCHLORIDE [Concomitant]
     Indication: BLOOD CHOLESTEROL ABNORMAL
     Dosage: 40 mg, daily
  4. GEMFIBROZIL [Concomitant]
     Dosage: UNK
  5. HUMALOG [Concomitant]
     Dosage: UNK
  6. METHYLPHENIDATE [Concomitant]
     Dosage: UNK
  7. PRIMIDONE [Concomitant]
     Dosage: UNK

REACTIONS (3)
  - Drug ineffective [Not Recovered/Not Resolved]
  - Fatigue [Not Recovered/Not Resolved]
  - Gait disturbance [Not Recovered/Not Resolved]
